FAERS Safety Report 5013757-6 (Version None)
Quarter: 2006Q2

REPORT INFORMATION
  Report Type: 
  Country: None (occurrence: None)
  Receive Date: 20060525
  Receipt Date: 20060520
  Transmission Date: 20061013
  Serious: Yes (Hospitalization)
  Sender: FDA-Public Use
  Company Number: 223570

PATIENT
  Age: 79 Year
  Sex: Male

DRUGS (3)
  1. AVASTIN [Suspect]
     Indication: PANCREATIC CARCINOMA
     Dosage: 15 MG/KG, Q3W, INTRAVENOUS
     Route: 042
     Dates: start: 20050427, end: 20060222
  2. CAPECITABINE (CAPECITABINE) [Suspect]
     Indication: PANCREATIC CARCINOMA
     Dosage: 650 MG/M2, ORAL
     Route: 048
     Dates: start: 20050427, end: 20060301
  3. GEMCITABINE [Suspect]
     Indication: PANCREATIC CARCINOMA
     Dosage: 1000 MG/M2
     Dates: start: 20050427, end: 20060222

REACTIONS (8)
  - BENIGN PROSTATIC HYPERPLASIA [None]
  - GASTRIC VARICES [None]
  - GASTROINTESTINAL DISORDER [None]
  - HAEMATURIA [None]
  - HYDRONEPHROSIS [None]
  - SPLEEN DISORDER [None]
  - VARICES OESOPHAGEAL [None]
  - VARICOSE VEIN [None]
